FAERS Safety Report 6831763-3 (Version None)
Quarter: 2010Q3

REPORT INFORMATION
  Report Type: 
  Country: None (occurrence: None)
  Receive Date: 20100712
  Receipt Date: 20100628
  Transmission Date: 20110219
  Serious: Yes (Other)
  Sender: FDA-Public Use
  Company Number: JP-GENZYME-RENA-1000766

PATIENT
  Age: 48 Year
  Sex: Male

DRUGS (1)
  1. RENAGEL [Suspect]
     Indication: HYPERPHOSPHATAEMIA
     Route: 048

REACTIONS (3)
  - CONSTIPATION [None]
  - DIARRHOEA [None]
  - DIVERTICULITIS [None]
